FAERS Safety Report 25255590 (Version 1)
Quarter: 2025Q2

REPORT INFORMATION
  Report Type: Spontaneous
  Country: ES (occurrence: ES)
  Receive Date: 20250430
  Receipt Date: 20250430
  Transmission Date: 20250717
  Serious: Yes (Death, Hospitalization)
  Sender: ACCORD
  Company Number: None

PATIENT
  Age: 79 Year
  Sex: Female
  Weight: 54 kg

DRUGS (1)
  1. TEMOZOLOMIDE [Suspect]
     Active Substance: TEMOZOLOMIDE
     Indication: Glioblastoma multiforme
     Dates: start: 20240926, end: 20241111

REACTIONS (3)
  - Pancytopenia [Fatal]
  - Streptococcal sepsis [Fatal]
  - Pseudomonal sepsis [Fatal]

NARRATIVE: CASE EVENT DATE: 20241101
